FAERS Safety Report 17031684 (Version 1)
Quarter: 2019Q4

REPORT INFORMATION
  Report Type: Not Available
  Country: CA (occurrence: CA)
  Receive Date: 20191114
  Receipt Date: 20191114
  Transmission Date: 20200122
  Serious: Yes (Death)
  Sender: FDA-Public Use
  Company Number: CA-CELGENEUS-CAN-20191104014

PATIENT
  Age: 49 Year
  Sex: Female

DRUGS (15)
  1. GEMCITABINE. [Suspect]
     Active Substance: GEMCITABINE
     Indication: PANCREATIC CARCINOMA METASTATIC
     Dosage: 1368 MILLIGRAM
     Route: 041
  2. HYDROMORPHONE HYDROCHLORIDE. [Concomitant]
     Active Substance: HYDROMORPHONE HYDROCHLORIDE
     Indication: BACK PAIN
     Route: 065
  3. VITAMINS NOS [Concomitant]
     Active Substance: VITAMINS
     Indication: SUPPLEMENTATION THERAPY
     Route: 065
  4. ERGOCALCIFEROL. [Concomitant]
     Active Substance: ERGOCALCIFEROL
     Indication: SUPPLEMENTATION THERAPY
     Route: 065
  5. PANCREATIN [Concomitant]
     Active Substance: PANCRELIPASE
     Indication: WEIGHT DECREASED
     Route: 065
  6. PANTOPRAZOLE [Concomitant]
     Active Substance: PANTOPRAZOLE
     Indication: GASTROOESOPHAGEAL REFLUX DISEASE
     Route: 065
  7. ABRAXANE [Suspect]
     Active Substance: PACLITAXEL
     Indication: PANCREATIC CARCINOMA METASTATIC
     Dosage: 170 MILLIGRAM
     Route: 041
  8. DURVALUMAB. [Suspect]
     Active Substance: DURVALUMAB
     Indication: PANCREATIC CARCINOMA METASTATIC
     Dosage: 1500 MILLIGRAM
     Route: 041
  9. CLINDAMYCIN HYDROCORTISONE [Concomitant]
     Indication: ACNE
     Route: 065
  10. MACROGOL 3350 [Concomitant]
     Active Substance: POLYETHYLENE GLYCOL 3350
     Indication: CONSTIPATION
     Route: 065
  11. PANTOPRAZOLE [Concomitant]
     Active Substance: PANTOPRAZOLE
     Indication: DYSPEPSIA
  12. PREDNISONE. [Concomitant]
     Active Substance: PREDNISONE
     Indication: WEIGHT DECREASED
     Route: 065
  13. TOCILIZUMAB. [Suspect]
     Active Substance: TOCILIZUMAB
     Indication: PANCREATIC CARCINOMA METASTATIC
     Dosage: 75 MILLIGRAM
     Route: 041
  14. BENZOYL PEROXIDE. [Concomitant]
     Active Substance: BENZOYL PEROXIDE
     Indication: ACNE
     Route: 065
  15. ASCORBIC ACID. [Concomitant]
     Active Substance: ASCORBIC ACID
     Indication: SUPPLEMENTATION THERAPY
     Route: 065

REACTIONS (4)
  - Pancreatic carcinoma [Fatal]
  - Embolism [Fatal]
  - Cerebral ischaemia [Fatal]
  - Posterior reversible encephalopathy syndrome [Fatal]
